FAERS Safety Report 17110010 (Version 1)
Quarter: 2019Q4

REPORT INFORMATION
  Report Type: Spontaneous
  Country: DE (occurrence: DE)
  Receive Date: 20191204
  Receipt Date: 20191204
  Transmission Date: 20200122
  Serious: Yes (Life-Threatening, Hospitalization)
  Sender: FDA-Public Use
  Company Number: DE-B.I. PHARMACEUTICALS,INC./RIDGEFIELD-2019-BI-117592

PATIENT
  Age: 94 Year
  Sex: Female

DRUGS (1)
  1. PRADAXA [Suspect]
     Active Substance: DABIGATRAN ETEXILATE MESYLATE
     Indication: PRODUCT USED FOR UNKNOWN INDICATION
     Route: 065

REACTIONS (6)
  - Ill-defined disorder [Recovering/Resolving]
  - Anticoagulation drug level increased [Recovering/Resolving]
  - Femoral neck fracture [Recovering/Resolving]
  - Haemoglobin decreased [Recovering/Resolving]
  - Haemorrhage [Recovering/Resolving]
  - Activated partial thromboplastin time prolonged [Recovering/Resolving]

NARRATIVE: CASE EVENT DATE: 201905
